FAERS Safety Report 6154394-X (Version None)
Quarter: 2009Q2

REPORT INFORMATION
  Report Type: 
  Country: None (occurrence: None)
  Receive Date: 20090414
  Receipt Date: 20090402
  Transmission Date: 20091009
  Serious: Yes (Hospitalization)
  Sender: FDA-Public Use
  Company Number: NL-ELI_LILLY_AND_COMPANY-NL200903005545

PATIENT
  Sex: Female
  Weight: 55 kg

DRUGS (2)
  1. STRATTERA [Suspect]
     Indication: DYSTHYMIC DISORDER
     Dosage: 70 MG,(60MG + 10MG) UNKNOWN
     Route: 048
     Dates: start: 20060601
  2. EFFEXOR XR [Concomitant]
     Indication: DEPRESSION
     Dosage: 75 MG, UNKNOWN
     Route: 048
     Dates: start: 20070801

REACTIONS (2)
  - CHEST PAIN [None]
  - HYPERTENSION [None]
